FAERS Safety Report 9821528 (Version 1)
Quarter: 2014Q1

REPORT INFORMATION
  Report Type: Spontaneous
  Country: FR (occurrence: FR)
  Receive Date: 20140116
  Receipt Date: 20140116
  Transmission Date: 20141002
  Serious: Yes (Hospitalization)
  Sender: FDA-Public Use
  Company Number: FR-AMGEN-FRASP2014001636

PATIENT
  Age: 50 Year
  Sex: Male

DRUGS (3)
  1. NEULASTA [Suspect]
     Indication: ACUTE MYELOID LEUKAEMIA
     Dosage: 6 UNK, UNK
     Route: 042
     Dates: start: 20131015, end: 20131015
  2. ARACYTINE [Suspect]
     Indication: ACUTE MYELOID LEUKAEMIA
     Dosage: UNK
     Route: 042
     Dates: start: 20131009, end: 20131013
  3. ZAVEDOS [Concomitant]
     Indication: ACUTE MYELOID LEUKAEMIA
     Dosage: UNK
     Route: 042
     Dates: start: 201308, end: 201309

REACTIONS (4)
  - Thrombosis [Recovering/Resolving]
  - Catheter site cellulitis [Recovering/Resolving]
  - Jugular vein thrombosis [Recovering/Resolving]
  - Subclavian vein thrombosis [Unknown]
